FAERS Safety Report 10243906 (Version 2)
Quarter: 2014Q3

REPORT INFORMATION
  Report Type: Spontaneous
  Country: US (occurrence: None)
  Receive Date: 20140616
  Receipt Date: 20140708
  Transmission Date: 20150326
  Serious: Yes (Other)
  Sender: FDA-Public Use
  Company Number: 2014-US-005824

PATIENT
  Age: 21 Year
  Sex: Female

DRUGS (3)
  1. XYREM [Suspect]
     Active Substance: SODIUM OXYBATE
     Indication: NARCOLEPSY
     Dosage: FIRST DOSE
     Route: 048
     Dates: start: 201404, end: 2014
  2. XYREM [Suspect]
     Active Substance: SODIUM OXYBATE
     Indication: CATAPLEXY
     Dosage: FIRST DOSE
     Route: 048
     Dates: start: 201404, end: 2014
  3. MORPHINE (MORPHINE SULFATE) [Suspect]
     Active Substance: MORPHINE SULFATE
     Indication: PROCEDURAL PAIN
     Dates: start: 201405

REACTIONS (8)
  - Insomnia [None]
  - Procedural pain [None]
  - Scoliosis surgery [None]
  - Migraine [None]
  - Post procedural complication [None]
  - Gastrooesophageal reflux disease [None]
  - Pharyngitis streptococcal [None]
  - Somnolence [None]

NARRATIVE: CASE EVENT DATE: 201405
